FAERS Safety Report 10304493 (Version 1)
Quarter: 2014Q3

REPORT INFORMATION
  Report Type: Spontaneous
  Country: US (occurrence: US)
  Receive Date: 20140715
  Receipt Date: 20140715
  Transmission Date: 20150326
  Serious: Yes (Hospitalization, Other)
  Sender: FDA-Public Use
  Company Number: US-ASTRAZENECA-2014SE48995

PATIENT
  Age: 766 Month
  Sex: Male

DRUGS (11)
  1. DEPAKOTE ER [Suspect]
     Active Substance: DIVALPROEX SODIUM
     Indication: CONVULSION
     Route: 048
     Dates: start: 201405
  2. VITAMIN B6 [Concomitant]
     Active Substance: PYRIDOXINE HYDROCHLORIDE
     Indication: PRODUCT USED FOR UNKNOWN INDICATION
  3. LOPRESSOR [Concomitant]
     Active Substance: METOPROLOL TARTRATE
     Indication: AORTIC VALVE REPLACEMENT
  4. VITAMIN B1 [Concomitant]
     Active Substance: THIAMINE HYDROCHLORIDE
     Indication: PRODUCT USED FOR UNKNOWN INDICATION
  5. IRON [Concomitant]
     Active Substance: IRON
     Indication: ANAEMIA
  6. NEXIUM [Suspect]
     Active Substance: ESOMEPRAZOLE MAGNESIUM
     Indication: PROPHYLAXIS
     Route: 048
     Dates: start: 2013
  7. DEPAKOTE ER [Suspect]
     Active Substance: DIVALPROEX SODIUM
     Indication: CONVULSION
     Dosage: DIVALPROEX SODIUM ER
     Route: 065
     Dates: start: 201312
  8. DEPAKOTE ER [Suspect]
     Active Substance: DIVALPROEX SODIUM
     Indication: BIPOLAR DISORDER
     Dosage: DIVALPROEX SODIUM ER
     Route: 065
     Dates: start: 201312
  9. LASIX [Concomitant]
     Active Substance: FUROSEMIDE
     Indication: CARDIAC FAILURE CONGESTIVE
  10. DEPAKOTE ER [Suspect]
     Active Substance: DIVALPROEX SODIUM
     Indication: BIPOLAR DISORDER
     Route: 048
     Dates: start: 201405
  11. ATIVAN [Suspect]
     Active Substance: LORAZEPAM
     Indication: AGITATION
     Route: 065
     Dates: start: 201312, end: 201401

REACTIONS (11)
  - Drug level changed [Unknown]
  - Upper limb fracture [Unknown]
  - Agitation [Recovered/Resolved]
  - Delusional disorder, unspecified type [Recovered/Resolved]
  - Osteoporosis [Unknown]
  - Generalised tonic-clonic seizure [Recovered/Resolved]
  - Convulsion [Recovered/Resolved]
  - Hip fracture [Unknown]
  - Visual impairment [Unknown]
  - Anticonvulsant drug level abnormal [Unknown]
  - Off label use [Unknown]

NARRATIVE: CASE EVENT DATE: 201312
